FAERS Safety Report 10185008 (Version 2)
Quarter: 2014Q2

REPORT INFORMATION
  Report Type: Report from Study
  Country: DE (occurrence: DE)
  Receive Date: 20140521
  Receipt Date: 20140521
  Transmission Date: 20141212
  Serious: Yes (Other)
  Sender: FDA-Public Use
  Company Number: DE-BEH-2014041111

PATIENT
  Age: 73 Year
  Sex: Male
  Weight: 86 kg

DRUGS (20)
  1. PRIVIGEN [Suspect]
     Indication: SELECTIVE IGG SUBCLASS DEFICIENCY
     Dosage: INFUSION RATE MIN. 0.15 ML/MIN, MAX. 2.0 ML/MIN
     Route: 042
     Dates: start: 20140214, end: 20140214
  2. PRIVIGEN [Suspect]
     Dosage: INFUSION RATE MIN. 0.15 ML/MIN, MAX. 2.0 ML/MIN
     Route: 042
     Dates: start: 20140214, end: 20140214
  3. PRIVIGEN [Suspect]
     Dosage: INFUSION RATE MIN. 0.3 ML/MIN, MAX. 4.0 ML/MIN
     Route: 042
     Dates: start: 20140215, end: 20140215
  4. PRIVIGEN [Suspect]
     Dosage: INFUSION RATE MIN. 0.15 ML/MIN, MAX. 2.0 ML/MIN
     Route: 042
     Dates: start: 20140215, end: 20140215
  5. PRIVIGEN [Suspect]
     Dosage: INFUSION RATE MIN. 0.3 ML/MIN, MAX. 4.0 ML/MIN
     Route: 042
     Dates: start: 20140216, end: 20140216
  6. PRIVIGEN [Suspect]
     Indication: SECONDARY IMMUNODEFICIENCY
     Dosage: INFUSION RATE MIN. 0.15 ML/MIN, MAX. 2.0 ML/MIN
     Route: 042
     Dates: start: 20140216, end: 20140216
  7. BISOPROLOL [Concomitant]
     Dosage: 1/2 - 0 - 1/2
  8. SIMVASTATIN [Concomitant]
     Dosage: 0 - 0 - 1
  9. CITALOPRAM [Concomitant]
     Dosage: 1 - 0 - 0
  10. PANTOZOL [Concomitant]
     Dosage: 1 - 0 - 0
  11. TOREM [Concomitant]
     Dosage: 1 - 0 - 0
  12. PARACETAMOL [Concomitant]
     Route: 048
     Dates: start: 20140214, end: 20140214
  13. PARACETAMOL [Concomitant]
     Indication: PREMEDICATION
     Route: 048
     Dates: start: 20140215, end: 20140215
  14. PARACETAMOL [Concomitant]
     Route: 048
     Dates: start: 20140216, end: 20140216
  15. E 153 [Concomitant]
     Dosage: PARALLEL INFUSION TO PRIVIGEN
     Dates: start: 20140214, end: 20140214
  16. E 153 [Concomitant]
     Dosage: PARALLEL INFUSION TO PRIVIGEN
     Dates: start: 20140215, end: 20140215
  17. E 153 [Concomitant]
     Dosage: PARALLEL INFUSION TO PRIVIGEN
     Dates: start: 20140216, end: 20140216
  18. E 153 [Concomitant]
     Dosage: PARALLEL INFUSION TO PRIVIGEN
     Dates: start: 20140307, end: 20140307
  19. E 153 [Concomitant]
     Dosage: PARALLEL INFUSION TO PRIVIGEN
     Dates: start: 20140331, end: 20140331
  20. RITUXIMAB [Concomitant]
     Indication: CHEMOTHERAPY
     Dosage: ALTOGETHER OVER TWO YEARS
     Route: 042
     Dates: start: 20140103

REACTIONS (3)
  - Bronchitis fungal [Unknown]
  - Chills [Recovered/Resolved]
  - Abdominal pain [Recovered/Resolved]
